FAERS Safety Report 8349650 (Version 2)
Quarter: 2014Q3

REPORT INFORMATION
  Report Type: Spontaneous
  Country: US (occurrence: US)
  Receive Date: 20120123
  Receipt Date: 20140709
  Transmission Date: 20150326
  Serious: Yes (Hospitalization)
  Sender: FDA-Public Use
  Company Number: US-GLAXOSMITHKLINE-B0717822A

PATIENT
  Sex: Female

DRUGS (1)
  1. AVANDIA [Suspect]
     Active Substance: ROSIGLITAZONE MALEATE
     Indication: DIABETES MELLITUS
     Dosage: 8MG PER DAY
     Route: 048
     Dates: start: 200302, end: 200708

REACTIONS (13)
  - Asthenia [Unknown]
  - Chest pain [Unknown]
  - Vision blurred [Unknown]
  - Amnesia [Unknown]
  - Chest discomfort [Unknown]
  - Heart rate increased [Unknown]
  - Dyspnoea [Unknown]
  - Hypotension [Unknown]
  - Tremor [Unknown]
  - Fatigue [Unknown]
  - Angina pectoris [Unknown]
  - Cardiac failure congestive [Recovering/Resolving]
  - Coronary artery disease [Unknown]
